FAERS Safety Report 24377801 (Version 1)
Quarter: 2024Q3

REPORT INFORMATION
  Report Type: Spontaneous
  Country: US (occurrence: US)
  Receive Date: 20240930
  Receipt Date: 20240930
  Transmission Date: 20241016
  Serious: Yes (Hospitalization, Other)
  Sender: Haleon PLC
  Company Number: US-HALEON-2198695

PATIENT
  Age: 31 Year
  Sex: Male

DRUGS (2)
  1. ACETAMINOPHEN [Suspect]
     Active Substance: ACETAMINOPHEN
     Indication: Product used for unknown indication
     Route: 048
  2. LINEZOLID [Concomitant]
     Active Substance: LINEZOLID
     Indication: Product used for unknown indication

REACTIONS (13)
  - Toxic encephalopathy [Recovering/Resolving]
  - Depressed level of consciousness [Recovering/Resolving]
  - Suicide attempt [Unknown]
  - Hyperthermia [Recovering/Resolving]
  - Tachycardia [Recovering/Resolving]
  - Labile blood pressure [Recovering/Resolving]
  - Tachypnoea [Recovering/Resolving]
  - Lethargy [Recovering/Resolving]
  - Mydriasis [Recovering/Resolving]
  - Muscle rigidity [Recovering/Resolving]
  - Agitation [Recovering/Resolving]
  - Pneumonia [Recovering/Resolving]
  - Pyrexia [Recovering/Resolving]
